FAERS Safety Report 10266007 (Version 2)
Quarter: 2014Q3

REPORT INFORMATION
  Report Type: Spontaneous
  Country: US (occurrence: US)
  Receive Date: 20140627
  Receipt Date: 20140929
  Transmission Date: 20150326
  Serious: Yes (Hospitalization, Other)
  Sender: FDA-Public Use
  Company Number: US-PFIZER INC-2014170318

PATIENT
  Age: 31 Year
  Sex: Female

DRUGS (6)
  1. FUROSEMIDE. [Suspect]
     Active Substance: FUROSEMIDE
     Dosage: 40 MG/DAY, 4 DOSES
     Route: 042
  2. ZIPRASIDONE HCL [Suspect]
     Active Substance: ZIPRASIDONE HYDROCHLORIDE
     Indication: AGITATION
     Dosage: 80 MG, EVERY 12 HOURS (Q12H) , 4 DOSES
     Route: 042
  3. HALOPERIDOL DECANOATE. [Suspect]
     Active Substance: HALOPERIDOL DECANOATE
     Indication: AGITATION
     Dosage: 200 MG OF DEPOT MONTHLY
     Route: 030
  4. TRAZODONE HYDROCHLORIDE. [Suspect]
     Active Substance: TRAZODONE HYDROCHLORIDE
     Dosage: 200 MG., EVERY NIGHT AT BEDTIME, 3 DOSES
     Route: 048
  5. CIPROFLOXACIN. [Suspect]
     Active Substance: CIPROFLOXACIN
     Dosage: 500 MG, 1 DOSE
     Route: 048
  6. HALOPERIDOL. [Suspect]
     Active Substance: HALOPERIDOL
     Dosage: 2 MG, EVERY 6 HOURS (Q6H) AS NEEDED
     Route: 042

REACTIONS (6)
  - Torsade de pointes [Recovered/Resolved]
  - Respiratory acidosis [Unknown]
  - Hypomagnesaemia [Unknown]
  - Mental status changes [Unknown]
  - Off label use [Unknown]
  - Electrocardiogram QT prolonged [Recovered/Resolved]
